FAERS Safety Report 9526885 (Version 3)
Quarter: 2014Q2

REPORT INFORMATION
  Report Type: Spontaneous
  Country: US (occurrence: US)
  Receive Date: 20130916
  Receipt Date: 20140417
  Transmission Date: 20141212
  Serious: Yes (Hospitalization)
  Sender: FDA-Public Use
  Company Number: US-B.I. PHARMACEUTICALS,INC./RIDGEFIELD-2013-BI-28777BP

PATIENT
  Age: 68 Year
  Sex: Male
  Weight: 92.99 kg

DRUGS (15)
  1. PRADAXA [Suspect]
     Indication: ATRIAL FIBRILLATION
     Dosage: 300 MG
     Route: 065
  2. PRADAXA [Suspect]
     Indication: ANTICOAGULANT THERAPY
  3. CARVEDILOL [Concomitant]
     Route: 065
  4. DIAZEPAN [Concomitant]
     Dosage: 5 MG
     Route: 065
  5. DIGOXIN [Concomitant]
     Dosage: 0.25 MG
     Route: 065
  6. LASIX [Concomitant]
     Dosage: 30 MG
     Route: 065
  7. GABAPENTIN [Concomitant]
     Dosage: 1800 MG
     Route: 065
  8. LEVOTHYROXINE [Concomitant]
     Dosage: 1000 MCG
     Route: 065
  9. LISINOPRIL [Concomitant]
     Dosage: 20 MG
     Route: 065
  10. NORTRIPTYLINE [Concomitant]
     Dosage: 25 MG
     Route: 065
  11. ALDACTONE [Concomitant]
     Dosage: 50 MG
     Route: 065
  12. MAG-CITRATE [Concomitant]
     Route: 065
  13. NYSTATIN POWDER [Concomitant]
     Route: 065
  14. EUCERIN [Concomitant]
     Route: 061
  15. VICODIN [Concomitant]
     Route: 065

REACTIONS (9)
  - Rectal haemorrhage [Unknown]
  - Epistaxis [Unknown]
  - Myocardial infarction [Unknown]
  - Respiratory failure [Unknown]
  - Chest pain [Unknown]
  - Syncope [Unknown]
  - Dizziness [Unknown]
  - Gastrointestinal disorder [Unknown]
  - Fall [Unknown]
